FAERS Safety Report 7516003-4 (Version None)
Quarter: 2011Q2

REPORT INFORMATION
  Report Type: 
  Country: None (occurrence: None)
  Receive Date: 20110601
  Receipt Date: 20101217
  Transmission Date: 20111010
  Serious: Yes (Hospitalization)
  Sender: FDA-Public Use
  Company Number: US-BAYER-201039523NA

PATIENT
  Age: 24 Year
  Sex: Female
  Weight: 47.727 kg

DRUGS (13)
  1. SOLU-MEDROL [Concomitant]
     Indication: PRODUCT USED FOR UNKNOWN INDICATION
     Route: 042
     Dates: start: 20071214, end: 20071214
  2. YASMIN [Suspect]
     Indication: ORAL CONTRACEPTION
     Route: 048
     Dates: start: 20070401, end: 20070801
  3. YASMIN [Suspect]
     Indication: MENSTRUAL CYCLE MANAGEMENT
  4. ZITHROMAX [Concomitant]
     Dosage: UNK
     Dates: start: 20071120
  5. ANTICOAGULATION [Concomitant]
  6. YAZ [Suspect]
     Indication: ORAL CONTRACEPTION
     Route: 048
     Dates: start: 20070401, end: 20070801
  7. INFED [Concomitant]
     Indication: PRODUCT USED FOR UNKNOWN INDICATION
     Route: 042
     Dates: start: 20071214, end: 20071214
  8. YAZ [Suspect]
     Indication: MENSTRUAL CYCLE MANAGEMENT
  9. YASMIN [Suspect]
     Indication: PREMENSTRUAL SYNDROME
  10. BENADRYL [Concomitant]
     Indication: PRODUCT USED FOR UNKNOWN INDICATION
     Route: 042
     Dates: start: 20071214, end: 20071214
  11. ADVIL LIQUI-GELS [Concomitant]
     Indication: PRODUCT USED FOR UNKNOWN INDICATION
  12. VALIUM [Concomitant]
     Indication: INSOMNIA
     Route: 048
     Dates: start: 20071212
  13. PANCOF [Concomitant]
     Dosage: UNK
     Dates: start: 20071120

REACTIONS (6)
  - DIZZINESS [None]
  - PULMONARY EMBOLISM [None]
  - DYSPNOEA [None]
  - MENTAL DISORDER [None]
  - CHEST PAIN [None]
  - ASTHENIA [None]
